FAERS Safety Report 9526793 (Version 3)
Quarter: 2013Q4

REPORT INFORMATION
  Report Type: Spontaneous
  Country: JP (occurrence: JP)
  Receive Date: 20130916
  Receipt Date: 20131001
  Transmission Date: 20140711
  Serious: Yes (Other)
  Sender: FDA-Public Use
  Company Number: JP-GLAXOSMITHKLINE-B0894922A

PATIENT
  Age: 22 Year
  Sex: Female
  Weight: 76 kg

DRUGS (6)
  1. LAMICTAL [Suspect]
     Indication: EPILEPSY
     Route: 048
     Dates: start: 20130516
  2. LAMICTAL [Suspect]
     Indication: EPILEPSY
     Route: 048
     Dates: start: 201305
  3. LAMICTAL [Suspect]
     Indication: EPILEPSY
     Route: 048
     Dates: start: 2013
  4. VALTREX [Suspect]
     Indication: HERPES SIMPLEX
     Route: 048
     Dates: start: 20130805, end: 20130809
  5. PHENOBAL [Concomitant]
     Indication: EPILEPSY
     Route: 048
     Dates: start: 20130624
  6. HUMALOG [Concomitant]
     Indication: DIABETES MELLITUS
     Route: 058
     Dates: start: 20130627

REACTIONS (5)
  - Caesarean section [Unknown]
  - Premature labour [Unknown]
  - Herpes simplex [Recovered/Resolved]
  - Live birth [Unknown]
  - Exposure during pregnancy [Unknown]
